FAERS Safety Report 19786656 (Version 3)
Quarter: 2021Q4

REPORT INFORMATION
  Report Type: Spontaneous
  Country: DE (occurrence: DE)
  Receive Date: 20210903
  Receipt Date: 20211123
  Transmission Date: 20220304
  Serious: Yes (Other)
  Sender: FDA-Public Use
  Company Number: DE-ARISTO PHARMA-LEVOM-LORA202103131

PATIENT
  Age: 33 Year
  Sex: Male

DRUGS (10)
  1. DIAZEPAM [Suspect]
     Active Substance: DIAZEPAM
     Indication: Product used for unknown indication
     Dosage: UNK
  2. OXAZEPAM [Suspect]
     Active Substance: OXAZEPAM
     Indication: Product used for unknown indication
     Dosage: UNK
  3. LORAZEPAM [Interacting]
     Active Substance: LORAZEPAM
     Indication: Product used for unknown indication
     Dosage: UNK
  4. TEMAZEPAM [Suspect]
     Active Substance: TEMAZEPAM
     Indication: Product used for unknown indication
     Dosage: UNK
  5. NORDAZEPAM [Suspect]
     Active Substance: NORDAZEPAM
     Indication: Product used for unknown indication
     Dosage: UNK
  6. LEVOMETHADONE [Suspect]
     Active Substance: LEVOMETHADONE
     Indication: Product used for unknown indication
     Dosage: UNK
  7. .ALPHA.-PYRROLIDINOVALEROTHIOPHENONE [Interacting]
     Active Substance: .ALPHA.-PYRROLIDINOVALEROTHIOPHENONE
  8. MORPHINE HYDROCHLORIDE [Interacting]
     Active Substance: MORPHINE HYDROCHLORIDE
     Dosage: UNK
  9. CODEINE PHOSPHATE [Interacting]
     Active Substance: CODEINE PHOSPHATE
     Dosage: UNK
  10. ETORICOXIB [Concomitant]
     Active Substance: ETORICOXIB
     Dosage: UNK

REACTIONS (20)
  - Thinking abnormal [Unknown]
  - Substance abuse [Unknown]
  - Memory impairment [Unknown]
  - Mental disorder [Unknown]
  - Psychotic behaviour [Unknown]
  - Aggression [Unknown]
  - Drug abuse [Unknown]
  - Mood swings [Unknown]
  - Personality change [Unknown]
  - Drug dependence [Unknown]
  - Communication disorder [Unknown]
  - Drug interaction [Unknown]
  - Dysarthria [Unknown]
  - Confusional state [Unknown]
  - Disorientation [Unknown]
  - Restlessness [Unknown]
  - Movement disorder [Unknown]
  - Abnormal behaviour [Unknown]
  - Logorrhoea [Unknown]
  - Irritability [Unknown]
